FAERS Safety Report 4956019-5 (Version None)
Quarter: 2006Q1

REPORT INFORMATION
  Report Type: 
  Country: None (occurrence: None)
  Receive Date: 20060328
  Receipt Date: 20050622
  Transmission Date: 20060701
  Serious: Yes (Other)
  Sender: FDA-Public Use
  Company Number: US-MERCK-0506USA03334

PATIENT
  Age: 62 Year
  Sex: Male

DRUGS (1)
  1. VIOXX [Suspect]
     Route: 048
     Dates: start: 20020101, end: 20040101

REACTIONS (10)
  - BLINDNESS [None]
  - CATARACT [None]
  - CEREBROVASCULAR ACCIDENT [None]
  - CHONDROPATHY [None]
  - CUTIS LAXA [None]
  - EYE DISORDER [None]
  - EYELID PTOSIS [None]
  - HYPERTENSION [None]
  - MACULAR OEDEMA [None]
  - MENISCUS LESION [None]
